FAERS Safety Report 4689896-6 (Version None)
Quarter: 2005Q2

REPORT INFORMATION
  Report Type: 
  Country: None (occurrence: None)
  Receive Date: 20050608
  Receipt Date: 20050209
  Transmission Date: 20051028
  Serious: No
  Sender: FDA-Public Use
  Company Number: 2005-BP-02067BP

PATIENT
  Sex: Male

DRUGS (6)
  1. SPIRIVA [Suspect]
     Indication: CHRONIC OBSTRUCTIVE PULMONARY DISEASE
     Dosage: 18 MCG (18 MCG), IH
     Route: 055
     Dates: start: 20041201
  2. ESTALIN [Concomitant]
  3. ZETIA [Concomitant]
  4. FLOMAX CAPSULES (TAMSULOSIN HYDROCHLORIDE) [Concomitant]
  5. IPRATROPIUM/ALBUTEROL SOLUTION (SALBUTAMOL W/IPRATROPIUM) (IPRATROPIUM [Concomitant]
  6. COMBIVENT (COMBIVENT/GFR/) [Concomitant]

REACTIONS (2)
  - CONSTIPATION [None]
  - DRY MOUTH [None]
